FAERS Safety Report 11184821 (Version 5)
Quarter: 2020Q1

REPORT INFORMATION
  Report Type: Spontaneous
  Country: CA (occurrence: CA)
  Receive Date: 20150612
  Receipt Date: 20200204
  Transmission Date: 20200409
  Serious: Yes (Hospitalization, Other)
  Sender: FDA-Public Use
  Company Number: CA-MERCK-1506CAN005296

PATIENT
  Age: 82 Year
  Sex: Female

DRUGS (1)
  1. SINGULAIR [Suspect]
     Active Substance: MONTELUKAST SODIUM
     Indication: ASTHMA
     Dosage: 10 MILLIGRAM (1 TABLET), QD
     Route: 048
     Dates: start: 2008

REACTIONS (9)
  - Pulmonary oedema [Unknown]
  - Asthma [Unknown]
  - Influenza [Unknown]
  - Heart rate increased [Recovered/Resolved]
  - Blood glucose decreased [Unknown]
  - Heart rate increased [Unknown]
  - Pneumonia [Recovered/Resolved]
  - Dementia [Not Recovered/Not Resolved]
  - Dementia [Unknown]

NARRATIVE: CASE EVENT DATE: 20150428
